FAERS Safety Report 15818937 (Version 1)
Quarter: 2020Q3

REPORT INFORMATION
  Report Type: Spontaneous
  Country: GB (occurrence: GB)
  Receive Date: 20190114
  Receipt Date: 20190114
  Transmission Date: 20201104
  Serious: Yes (Disabling)
  Sender: FDA-Public Use
  Company Number: GB-TEVA-2019-GB-998428

PATIENT
  Age: 53 Year
  Sex: Female

DRUGS (11)
  1. ETORICOXIB. [Suspect]
     Active Substance: ETORICOXIB
     Dosage: 60 MILLIGRAM DAILY;
     Route: 065
  2. TRAMADOL. [Concomitant]
     Active Substance: TRAMADOL
     Dosage: A MAXIMUM OF 2 FOUR TIMES DAILY
     Route: 065
  3. QUININE SULFATE. [Concomitant]
     Active Substance: QUININE SULFATE
     Dosage: 300 MILLIGRAM DAILY; AT NIGHT
     Route: 065
  4. AMITRIPTYLINE [Suspect]
     Active Substance: AMITRIPTYLINE
     Dosage: 20 MILLIGRAM DAILY; AT NIGHT
     Route: 065
  5. CYCLIZINE [Concomitant]
     Active Substance: CYCLIZINE
     Dosage: THREE TIMES DAILY
     Route: 065
  6. ATORVASTATIN [Concomitant]
     Active Substance: ATORVASTATIN
     Dosage: 40 MILLIGRAM DAILY; AT NIGHT
     Route: 065
  7. LANSOPRAZOLE. [Suspect]
     Active Substance: LANSOPRAZOLE
     Dosage: 30 MILLIGRAM DAILY;
     Route: 065
  8. BACLOFEN. [Concomitant]
     Active Substance: BACLOFEN
     Dosage: 10 MILLIGRAM DAILY; AT NIGHT
     Route: 065
  9. MIRTAZAPINE. [Suspect]
     Active Substance: MIRTAZAPINE
     Indication: DEPRESSION
     Dosage: 30 MILLIGRAM DAILY; AT NIGHT, DOSE REDUCED TO 30 MG ONE DAY, 15MG NEXT
     Route: 065
     Dates: start: 2015
  10. GABAPENTIN. [Concomitant]
     Active Substance: GABAPENTIN
     Dosage: 2 TABLETS MAXIMUM
     Route: 065
  11. ZOPICLONE [Concomitant]
     Active Substance: ZOPICLONE
     Dosage: 7.5 MILLIGRAM DAILY; AT NIGHT
     Route: 048

REACTIONS (4)
  - Dry eye [Unknown]
  - Somnolence [Unknown]
  - Dry mouth [Unknown]
  - Dry skin [Unknown]

NARRATIVE: CASE EVENT DATE: 201805
